FAERS Safety Report 20048608 (Version 1)
Quarter: 2021Q4

REPORT INFORMATION
  Report Type: Spontaneous
  Country: SK (occurrence: None)
  Receive Date: 20211109
  Receipt Date: 20211109
  Transmission Date: 20220303
  Serious: Yes (Death, Hospitalization, Other)
  Sender: FDA-Public Use
  Company Number: SK-ADIENNEP-2021AD000552

PATIENT
  Age: 3 Year
  Sex: Male

DRUGS (5)
  1. THIOTEPA [Suspect]
     Active Substance: THIOTEPA
     Indication: Allogenic stem cell transplantation
  2. TREOSULFAN [Suspect]
     Active Substance: TREOSULFAN
     Indication: Allogenic stem cell transplantation
  3. FLUDARABINE [Suspect]
     Active Substance: FLUDARABINE PHOSPHATE
     Indication: Allogenic stem cell transplantation
  4. THYMOCYTE IMMUNE GLOBULIN NOS [Suspect]
     Active Substance: THYMOCYTE IMMUNE GLOBULIN NOS
     Indication: Prophylaxis against graft versus host disease
  5. CYCLOSPORINE [Suspect]
     Active Substance: CYCLOSPORINE
     Indication: Prophylaxis against graft versus host disease

REACTIONS (16)
  - Venoocclusive liver disease [Unknown]
  - Febrile neutropenia [Unknown]
  - Klebsiella infection [Unknown]
  - Anuria [Unknown]
  - Respiratory failure [Unknown]
  - Acute graft versus host disease in intestine [Unknown]
  - Intestinal haemorrhage [Unknown]
  - Candida infection [Unknown]
  - Staphylococcal infection [Unknown]
  - Enterococcal infection [Unknown]
  - Pyrexia [Unknown]
  - Stenotrophomonas infection [Unknown]
  - Protothecosis [Unknown]
  - Renal failure [Unknown]
  - Sepsis [Unknown]
  - Multiple organ dysfunction syndrome [Fatal]
